FAERS Safety Report 14642139 (Version 2)
Quarter: 2018Q1

REPORT INFORMATION
  Report Type: Spontaneous
  Country: DE (occurrence: DE)
  Receive Date: 20180315
  Receipt Date: 20180330
  Transmission Date: 20180509
  Serious: No
  Sender: FDA-Public Use
  Company Number: DE-SA-2018SA067242

PATIENT
  Age: 60 Year
  Sex: Male

DRUGS (1)
  1. APROVEL [Suspect]
     Active Substance: IRBESARTAN
     Indication: HYPERTENSION
     Route: 048
     Dates: start: 20170901, end: 20171101

REACTIONS (7)
  - Disturbance in attention [Recovered/Resolved]
  - Epistaxis [Recovered/Resolved]
  - Product substitution issue [Unknown]
  - Disturbance in attention [Recovered/Resolved]
  - Irritability [Recovered/Resolved]
  - Hypertension [Recovered/Resolved]
  - Headache [Recovered/Resolved]

NARRATIVE: CASE EVENT DATE: 201709
